FAERS Safety Report 20992281 (Version 1)
Quarter: 2022Q2

REPORT INFORMATION
  Report Type: Spontaneous
  Country: AU (occurrence: AU)
  Receive Date: 20220622
  Receipt Date: 20220622
  Transmission Date: 20220721
  Serious: Yes (Other)
  Sender: FDA-Public Use
  Company Number: AU-GLAXOSMITHKLINE-AU2022APC094247

PATIENT

DRUGS (1)
  1. ZEJULA [Suspect]
     Active Substance: NIRAPARIB
     Indication: Product used for unknown indication
     Dosage: 100 MG

REACTIONS (6)
  - Malignant neoplasm progression [Unknown]
  - Hypertension [Unknown]
  - Condition aggravated [Unknown]
  - Carbohydrate antigen 125 increased [Unknown]
  - Hepatic function abnormal [Unknown]
  - Off label use [Unknown]
